FAERS Safety Report 15770843 (Version 6)
Quarter: 2019Q2

REPORT INFORMATION
  Report Type: Report from Study
  Country: DK (occurrence: DK)
  Receive Date: 20181228
  Receipt Date: 20190530
  Transmission Date: 20190711
  Serious: Yes (Hospitalization)
  Sender: FDA-Public Use
  Company Number: DK-JNJFOC-20181227466

PATIENT
  Age: 13 Year
  Sex: Female
  Weight: 52.6 kg

DRUGS (3)
  1. AZATHIOPRINE. [Concomitant]
     Active Substance: AZATHIOPRINE
     Route: 065
     Dates: end: 201811
  2. REMICADE [Suspect]
     Active Substance: INFLIXIMAB
     Indication: CROHN^S DISEASE
     Route: 042
     Dates: start: 20070907, end: 20150824
  3. HUMIRA [Concomitant]
     Active Substance: ADALIMUMAB
     Route: 065
     Dates: start: 20161004

REACTIONS (2)
  - Constipation [Recovered/Resolved]
  - Facial operation [Not Recovered/Not Resolved]

NARRATIVE: CASE EVENT DATE: 20181203
